FAERS Safety Report 16715641 (Version 1)
Quarter: 2019Q3

REPORT INFORMATION
  Report Type: Spontaneous
  Country: US (occurrence: US)
  Receive Date: 20190819
  Receipt Date: 20190819
  Transmission Date: 20191005
  Serious: No
  Sender: FDA-Public Use
  Company Number: US-MYLANLABS-2019M1073800

PATIENT
  Age: 61 Year
  Sex: Female

DRUGS (1)
  1. PREDNISONE TABLETS USP [Suspect]
     Active Substance: PREDNISONE
     Indication: DERMATITIS CONTACT
     Dosage: 2 DOSAGE FORM, BID
     Route: 048
     Dates: start: 20190731, end: 20190804

REACTIONS (5)
  - Dysstasia [Recovered/Resolved]
  - Abdominal distension [Recovered/Resolved]
  - Vomiting [Recovered/Resolved]
  - Dyspepsia [Recovered/Resolved]
  - Discomfort [Recovered/Resolved]

NARRATIVE: CASE EVENT DATE: 20190805
